FAERS Safety Report 8080259-2 (Version None)
Quarter: 2012Q1

REPORT INFORMATION
  Report Type: 
  Country: None (occurrence: None)
  Receive Date: 20120130
  Receipt Date: 20120120
  Transmission Date: 20120608
  Serious: Yes (Hospitalization)
  Sender: FDA-Public Use
  Company Number: US-BAYER-2010-006391

PATIENT
  Age: 35 Year
  Sex: Female
  Weight: 67.574 kg

DRUGS (13)
  1. LEVOTHYROXINE SODIUM [Concomitant]
  2. SYNTHROID [Concomitant]
  3. YAZ [Suspect]
  4. PROAIR HFA [Concomitant]
  5. CYCLOBENZAPRINE [Concomitant]
  6. OMEPRAZOLE [Concomitant]
  7. PHENAZOPYRIDINE HCL TAB [Concomitant]
  8. LISINOPRIL [Concomitant]
  9. XANAX [Concomitant]
  10. CITALOPRAM [Concomitant]
  11. LORATADINE [Concomitant]
  12. ZOCOR [Concomitant]
  13. YAZ [Suspect]
     Indication: PREMENSTRUAL SYNDROME
     Dosage: UNK
     Route: 048
     Dates: start: 20070101, end: 20080101

REACTIONS (4)
  - MENTAL DISORDER [None]
  - MYOCARDIAL INFARCTION [None]
  - INJURY [None]
  - PAIN [None]
